FAERS Safety Report 9125427 (Version 2)
Quarter: 2013Q2

REPORT INFORMATION
  Report Type: Spontaneous
  Country: US (occurrence: US)
  Receive Date: 20130117
  Receipt Date: 20130423
  Transmission Date: 20140414
  Serious: Yes (Hospitalization)
  Sender: FDA-Public Use
  Company Number: US-BRISTOL-MYERS SQUIBB COMPANY-17136219

PATIENT
  Age: 70 Year
  Sex: Female
  Weight: 62.13 kg

DRUGS (1)
  1. YERVOY [Suspect]
     Indication: METASTATIC MALIGNANT MELANOMA
     Dosage: DOSED AT 3MG/KG, ?LAST INF:20SP12,11OCT12,01NOV12
     Route: 042
     Dates: start: 20120830

REACTIONS (4)
  - Diarrhoea [Unknown]
  - Pain in extremity [Recovering/Resolving]
  - Oedema peripheral [Unknown]
  - Fatigue [Unknown]
